FAERS Safety Report 4690732-2 (Version None)
Quarter: 2005Q2

REPORT INFORMATION
  Report Type: 
  Country: None (occurrence: None)
  Receive Date: 20050615
  Receipt Date: 20040902
  Transmission Date: 20051028
  Serious: Yes (Hospitalization)
  Sender: FDA-Public Use
  Company Number: GB-SANOFI-SYNTHELABO-D01200403441

PATIENT
  Sex: Male
  Weight: 106 kg

DRUGS (7)
  1. SR57746 OR PLACEBO [Suspect]
     Route: 048
     Dates: start: 20040423, end: 20040901
  2. OXALIPLATIN [Suspect]
     Route: 042
     Dates: start: 20040820, end: 20040820
  3. FLUOROURACIL [Suspect]
     Dosage: 400 MG/M2 AS IV BOLUS THEN 600 MG/M2 AS 22 HOURS CONTINUOUS INFUSION D1-D2 Q2W
     Route: 042
     Dates: start: 20040820, end: 20040821
  4. LEUCOVORIN CALCIUM [Suspect]
     Dosage: 200 MG/M2 AS 2 HOURS INFUSION ON D1-D2 Q2W
     Route: 042
     Dates: start: 20040820, end: 20040821
  5. BENDROFLUMETHIAZIDE [Concomitant]
     Dosage: UNK
     Route: 065
     Dates: start: 20021007, end: 20040902
  6. ATENOLOL [Concomitant]
     Dosage: UNK
     Route: 065
     Dates: start: 20021031
  7. CLEXANE [Concomitant]
     Dosage: UNK
     Route: 065
     Dates: start: 20040529, end: 20040902

REACTIONS (7)
  - BLOOD POTASSIUM DECREASED [None]
  - BLOOD SODIUM DECREASED [None]
  - CONVULSION [None]
  - HYPERGLYCAEMIA [None]
  - HYPOAESTHESIA [None]
  - MUSCLE SPASMS [None]
  - TREMOR [None]
